FAERS Safety Report 5138359-2 (Version None)
Quarter: 2006Q4

REPORT INFORMATION
  Report Type: 
  Country: None (occurrence: None)
  Receive Date: 20061025
  Receipt Date: 20061025
  Transmission Date: 20070319
  Serious: Yes (Other)
  Sender: FDA-Public Use
  Company Number: None

PATIENT
  Age: 34 Year
  Sex: Male
  Weight: 84.6 kg

DRUGS (5)
  1. DEFINITY [Suspect]
     Indication: ULTRASOUND SCAN
     Dosage: 2 ML IV
     Route: 042
  2. LISINOPRIL [Concomitant]
  3. HYDROCHLOROTHIAZIDE [Concomitant]
  4. MOV [Concomitant]
  5. FISH OIL [Concomitant]

REACTIONS (2)
  - PRURITUS [None]
  - URTICARIA [None]
